FAERS Safety Report 9110512 (Version 1)
Quarter: 2013Q1

REPORT INFORMATION
  Report Type: Spontaneous
  Country: US (occurrence: US)
  Receive Date: 20130222
  Receipt Date: 20130222
  Transmission Date: 20140127
  Serious: Yes (Other)
  Sender: FDA-Public Use
  Company Number: US-RB-047601-12

PATIENT
  Age: 68 None
  Sex: Female
  Weight: 68.95 kg

DRUGS (8)
  1. MUCINEX DM [Suspect]
     Indication: PRODUCT USED FOR UNKNOWN INDICATION
     Dosage: 2 600 MG TABLETS
     Route: 048
     Dates: start: 20121209
  2. MUCINEX DM [Suspect]
  3. ATENOLOL [Concomitant]
     Indication: BLOOD PRESSURE
     Route: 048
  4. TRAMADOL [Concomitant]
     Indication: BACK PAIN
     Route: 048
  5. FISH OIL [Concomitant]
     Indication: PRODUCT USED FOR UNKNOWN INDICATION
     Route: 048
  6. VITAMIN B12 [Concomitant]
     Indication: PRODUCT USED FOR UNKNOWN INDICATION
     Route: 048
  7. VITAMIN B6 [Concomitant]
     Indication: PRODUCT USED FOR UNKNOWN INDICATION
     Route: 048
  8. ASPIRIN [Concomitant]
     Indication: PRODUCT USED FOR UNKNOWN INDICATION
     Route: 048

REACTIONS (11)
  - Hallucination [Recovered/Resolved]
  - Confusional state [Recovered/Resolved]
  - Pyrexia [Recovered/Resolved]
  - Wheezing [Unknown]
  - Sinus congestion [Unknown]
  - Ear pain [Unknown]
  - Hallucination, visual [None]
  - Ear discomfort [None]
  - Upper-airway cough syndrome [None]
  - Productive cough [None]
  - Arthralgia [None]
